FAERS Safety Report 11899321 (Version 1)
Quarter: 2016Q1

REPORT INFORMATION
  Report Type: Spontaneous
  Country: US (occurrence: US)
  Receive Date: 20160108
  Receipt Date: 20160108
  Transmission Date: 20160526
  Serious: No
  Sender: FDA-Public Use
  Company Number: US-SA-2015SA170241

PATIENT
  Age: 73 Year
  Sex: Male

DRUGS (1)
  1. AFREZZA [Suspect]
     Active Substance: INSULIN HUMAN
     Dosage: DOSAGE: 8 UNITS BEFORE BREAKFAST, 12 UNITS BEFORE LUNCH AND 32 UNITS BEFORE EVENING MEAL
     Route: 055
     Dates: start: 201510

REACTIONS (5)
  - Product use issue [Unknown]
  - Cough [Not Recovered/Not Resolved]
  - Blood glucose abnormal [Not Recovered/Not Resolved]
  - Retching [Not Recovered/Not Resolved]
  - Throat irritation [Not Recovered/Not Resolved]
